FAERS Safety Report 15699015 (Version 9)
Quarter: 2022Q2

REPORT INFORMATION
  Report Type: Spontaneous
  Country: US (occurrence: US)
  Receive Date: 20181207
  Receipt Date: 20220613
  Transmission Date: 20220721
  Serious: Yes (Other)
  Sender: FDA-Public Use
  Company Number: US-PFIZER INC-2018501857

PATIENT
  Age: 61 Year
  Sex: Female

DRUGS (5)
  1. XELJANZ [Suspect]
     Active Substance: TOFACITINIB CITRATE
     Dosage: 10 MG, UNK
     Route: 048
  2. XELJANZ [Suspect]
     Active Substance: TOFACITINIB CITRATE
     Dosage: 5 MG, UNK (TAB 5MG (X60))
     Dates: start: 20190306, end: 2019
  3. XELJANZ [Suspect]
     Active Substance: TOFACITINIB CITRATE
     Dosage: 5 MG, UNK
     Dates: start: 20190624
  4. XELJANZ [Suspect]
     Active Substance: TOFACITINIB CITRATE
     Dosage: 5 MG, UNK
     Dates: start: 20190718
  5. XELJANZ [Suspect]
     Active Substance: TOFACITINIB CITRATE
     Dosage: 5 MG, UNK (TAB 5MG (X60)
     Dates: start: 20191025

REACTIONS (14)
  - Rheumatoid arthritis [Unknown]
  - Drug ineffective [Unknown]
  - Product dose omission issue [Unknown]
  - Hair disorder [Unknown]
  - Nail disorder [Unknown]
  - Alopecia [Unknown]
  - Pharyngitis streptococcal [Unknown]
  - Dyspnoea [Unknown]
  - Hot flush [Unknown]
  - Nasal discomfort [Unknown]
  - Oral herpes [Unknown]
  - Nasopharyngitis [Unknown]
  - Nasal congestion [Unknown]
  - Arthralgia [Unknown]
